FAERS Safety Report 9925818 (Version 2)
Quarter: 2014Q2

REPORT INFORMATION
  Report Type: Report from Study
  Country: IT (occurrence: IT)
  Receive Date: 20140226
  Receipt Date: 20140429
  Transmission Date: 20141212
  Serious: Yes (Hospitalization)
  Sender: FDA-Public Use
  Company Number: IT-SHIRE-ALL1-2014-01145

PATIENT
  Age: 35 Year
  Sex: Female
  Weight: 54 kg

DRUGS (7)
  1. 602 (DEFERITAZOLE) [Suspect]
     Indication: IRON OVERLOAD
     Dosage: 25 MG, 2X/DAY:BID
     Route: 048
     Dates: start: 20140206, end: 20140213
  2. 602 (DEFERITAZOLE) [Suspect]
     Dosage: 25 MG/KG, 2X/DAY:BID
     Route: 048
     Dates: start: 20140217
  3. MINULET [Concomitant]
     Indication: HYPOGONADISM
     Dosage: UNK, UNKNOWN
     Route: 065
     Dates: start: 1996
  4. PARIET [Concomitant]
     Indication: HIATUS HERNIA
     Dosage: UNK, AS REQ^D
     Route: 065
     Dates: start: 201402
  5. PARIET [Concomitant]
     Indication: GASTROOESOPHAGEAL REFLUX DISEASE
  6. RIOPAN                             /00141701/ [Concomitant]
     Indication: HIATUS HERNIA
     Dosage: UNK, AS REQ^D
     Route: 065
     Dates: start: 201402
  7. RIOPAN                             /00141701/ [Concomitant]
     Indication: GASTROOESOPHAGEAL REFLUX DISEASE

REACTIONS (1)
  - Chest pain [Recovered/Resolved]
